FAERS Safety Report 20998691 (Version 1)
Quarter: 2022Q2

REPORT INFORMATION
  Report Type: Spontaneous
  Country: US (occurrence: US)
  Receive Date: 20220623
  Receipt Date: 20220623
  Transmission Date: 20220720
  Serious: No
  Sender: FDA-Public Use
  Company Number: US-ORGANON-O2206USA001956

PATIENT
  Age: 16 Year
  Sex: Female

DRUGS (1)
  1. NEXPLANON [Suspect]
     Active Substance: ETONOGESTREL
     Indication: Contraception
     Dosage: ONE IMPLANT EVERY THREE YEARS
     Route: 059
     Dates: start: 20220317

REACTIONS (1)
  - Breast mass [Unknown]

NARRATIVE: CASE EVENT DATE: 20220524
